FAERS Safety Report 20348388 (Version 2)
Quarter: 2022Q1

REPORT INFORMATION
  Report Type: Other
  Country: ES (occurrence: ES)
  Receive Date: 20220119
  Receipt Date: 20220121
  Transmission Date: 20220423
  Serious: Yes (Hospitalization, Other)
  Sender: FDA-Public Use
  Company Number: None

PATIENT
  Age: 58 Year
  Sex: Male

DRUGS (5)
  1. PROGRAF [Suspect]
     Active Substance: TACROLIMUS
     Indication: COVID-19 immunisation
     Dosage: 2 MG, EVERY 12 HOURS (60 CAPSULES)
     Route: 048
     Dates: start: 202101
  2. SPIKEVAX [Suspect]
     Active Substance: ELASOMERAN
     Indication: COVID-19 immunisation
     Dosage: 1 DF, ONCE DAILY (1ST DOSE)
     Route: 030
     Dates: start: 20210524, end: 20210524
  3. SPIKEVAX [Suspect]
     Active Substance: ELASOMERAN
     Dosage: 1 DF, ONCE DAILY (2ND DOSE)
     Route: 030
     Dates: start: 20210621, end: 20210621
  4. PREDNISONE [Suspect]
     Active Substance: PREDNISONE
     Indication: Solid organ transplant
     Route: 048
     Dates: start: 2017
  5. MYFORTIC [Suspect]
     Active Substance: MYCOPHENOLATE SODIUM
     Indication: Solid organ transplant
     Dosage: UNK UNK, UNKNOWN FREQ.
     Route: 048
     Dates: start: 202109

REACTIONS (2)
  - Vaccination failure [Not Recovered/Not Resolved]
  - COVID-19 pneumonia [Not Recovered/Not Resolved]

NARRATIVE: CASE EVENT DATE: 20220103
